FAERS Safety Report 4748087-0 (Version None)
Quarter: 2005Q3

REPORT INFORMATION
  Report Type: 
  Country: None (occurrence: None)
  Receive Date: 20050818
  Receipt Date: 20050811
  Transmission Date: 20060218
  Serious: Yes (Death, Hospitalization)
  Sender: FDA-Public Use
  Company Number: FR-MERCK-0508FRA00016

PATIENT
  Age: 83 Year
  Sex: Female
  Weight: 67 kg

DRUGS (6)
  1. COZAAR [Suspect]
     Indication: HYPERTENSION
     Route: 048
     Dates: start: 20050209, end: 20050210
  2. AMOXICILLIN AND CLAVULANATE POTASSIUM [Suspect]
     Indication: LUNG INFECTION
     Route: 048
     Dates: start: 20050208, end: 20050217
  3. VALSARTAN [Suspect]
     Indication: HYPERTENSION
     Route: 048
     Dates: end: 20050207
  4. ISOSORBIDE MONONITRATE [Suspect]
     Indication: ISCHAEMIC CARDIOMYOPATHY
     Route: 048
     Dates: start: 20040101
  5. PHLOROGLUCINOL AND TRIMETHYLPHLOROGLUCINOL [Suspect]
     Route: 048
     Dates: start: 20050211, end: 20050214
  6. FLUINDIONE [Suspect]
     Indication: ISCHAEMIC CARDIOMYOPATHY
     Route: 048
     Dates: start: 20040101, end: 20050211

REACTIONS (2)
  - CARDIAC ARREST [None]
  - MUSCLE HAEMORRHAGE [None]
